FAERS Safety Report 5509970-1 (Version None)
Quarter: 2007Q4

REPORT INFORMATION
  Report Type: 
  Country: None (occurrence: None)
  Receive Date: 20071102
  Receipt Date: 20071102
  Transmission Date: 20080405
  Serious: Yes (Other)
  Sender: FDA-Public Use
  Company Number: None

PATIENT
  Sex: Female
  Weight: 63.5036 kg

DRUGS (2)
  1. BOTULINUM TOXIN TYPE A [Suspect]
     Indication: MUSCLE SPASMS
     Dosage: 150 UNITS, ONCE, IM
     Route: 030
     Dates: start: 20070703, end: 20070703
  2. BOTULINUM TOXIN TYPE A [Suspect]
     Indication: PERONEAL NERVE PALSY
     Dosage: 150 UNITS, ONCE, IM
     Route: 030
     Dates: start: 20070703, end: 20070703

REACTIONS (1)
  - BREAST CANCER FEMALE [None]
